FAERS Safety Report 20103580 (Version 1)
Quarter: 2021Q4

REPORT INFORMATION
  Report Type: Spontaneous
  Country: CA (occurrence: CA)
  Receive Date: 20211123
  Receipt Date: 20211123
  Transmission Date: 20220304
  Serious: Yes (Life-Threatening, Hospitalization, Congenital Anomaly, Other)
  Sender: FDA-Public Use
  Company Number: CA-TEVA-2021-CA-1951357

PATIENT
  Age: 18 Year
  Sex: Female

DRUGS (16)
  1. AMITRIPTYLINE HYDROCHLORIDE [Suspect]
     Active Substance: AMITRIPTYLINE HYDROCHLORIDE
     Indication: Product used for unknown indication
     Route: 065
  2. CITALOPRAM [Suspect]
     Active Substance: CITALOPRAM HYDROBROMIDE
     Indication: Product used for unknown indication
     Route: 048
  3. MOMETASONE FUROATE [Suspect]
     Active Substance: MOMETASONE FUROATE
     Indication: Product used for unknown indication
     Route: 065
  4. MONTELUKAST SODIUM [Suspect]
     Active Substance: MONTELUKAST SODIUM
     Indication: Asthma
     Route: 048
  5. ALVESCO [Suspect]
     Active Substance: CICLESONIDE
     Indication: Asthma
     Route: 065
  6. FERROUS GLUCONATE [Suspect]
     Active Substance: FERROUS GLUCONATE
     Indication: Product used for unknown indication
     Route: 048
  7. FORMOTEROL [Suspect]
     Active Substance: FORMOTEROL
     Indication: Product used for unknown indication
     Dosage: 4 DOSAGE FORMS DAILY;
     Route: 065
  8. FORMOTEROL FUMARATE\MOMETASONE FUROATE [Suspect]
     Active Substance: FORMOTEROL FUMARATE\MOMETASONE FUROATE
     Indication: Product used for unknown indication
     Route: 065
  9. FORMOTEROL FUMARATE\MOMETASONE FUROATE [Suspect]
     Active Substance: FORMOTEROL FUMARATE\MOMETASONE FUROATE
     Indication: Asthma
     Dosage: 8 DOSAGE FORMS DAILY;
     Route: 065
  10. GRAVOL [Suspect]
     Active Substance: DIMENHYDRINATE
     Indication: Product used for unknown indication
     Route: 065
  11. MEPOLIZUMAB [Suspect]
     Active Substance: MEPOLIZUMAB
     Indication: Asthma
     Route: 042
  12. SODIUM BICARBONATE\SODIUM CHLORIDE [Suspect]
     Active Substance: SODIUM BICARBONATE\SODIUM CHLORIDE
     Indication: Product used for unknown indication
     Route: 065
  13. SPIRIVA [Suspect]
     Active Substance: TIOTROPIUM BROMIDE MONOHYDRATE
     Indication: Asthma
     Route: 065
  14. URSODIOL [Suspect]
     Active Substance: URSODIOL
     Indication: Product used for unknown indication
     Dosage: 750 MILLIGRAM DAILY;
     Route: 048
  15. VENTOLIN [Suspect]
     Active Substance: ALBUTEROL SULFATE
     Indication: Product used for unknown indication
     Route: 065
  16. TIOTROPIUM BROMIDE MONOHYDRATE [Suspect]
     Active Substance: TIOTROPIUM BROMIDE MONOHYDRATE
     Indication: Asthma
     Route: 065

REACTIONS (24)
  - Abdominal discomfort [Unknown]
  - Allergic sinusitis [Unknown]
  - Anaphylactic reaction [Unknown]
  - Anxiety [Unknown]
  - Asthma [Unknown]
  - CFTR gene mutation [Unknown]
  - Chest discomfort [Unknown]
  - Chest pain [Unknown]
  - Cough [Unknown]
  - Depression [Unknown]
  - Dyspnoea [Unknown]
  - Eczema [Unknown]
  - Flushing [Unknown]
  - Hypersensitivity [Unknown]
  - Injection site erythema [Unknown]
  - Injection site pruritus [Unknown]
  - Lip pruritus [Unknown]
  - Nausea [Unknown]
  - Pancreatitis relapsing [Unknown]
  - Post-traumatic stress disorder [Unknown]
  - Rash [Unknown]
  - Rhinitis [Unknown]
  - Urinary retention [Unknown]
  - Adverse drug reaction [Unknown]
